FAERS Safety Report 4335454-2 (Version None)
Quarter: 2004Q2

REPORT INFORMATION
  Report Type: 
  Country: None (occurrence: None)
  Receive Date: 20040409
  Receipt Date: 20040202
  Transmission Date: 20050107
  Serious: Yes (Other)
  Sender: FDA-Public Use
  Company Number: US-BRISTOL-MYERS SQUIBB COMPANY-12493342

PATIENT
  Age: 38 Year
  Sex: Female

DRUGS (5)
  1. ABILIFY [Suspect]
     Indication: BIPOLAR DISORDER
     Route: 048
     Dates: start: 20031124, end: 20031207
  2. SEROQUEL [Suspect]
     Indication: INSOMNIA
     Dosage: 12.5 TO 25 MG/DAY AS NEEDED
     Dates: start: 20031124, end: 20031207
  3. KLONOPIN [Suspect]
     Dates: start: 20031124, end: 20031207
  4. LEXAPRO [Suspect]
     Dates: start: 20031124, end: 20031207
  5. WELLBUTRIN [Suspect]
     Dates: start: 20031124, end: 20031207

REACTIONS (4)
  - COMPLICATIONS OF MATERNAL EXPOSURE TO THERAPEUTIC DRUGS [None]
  - INTRA-UTERINE DEATH [None]
  - MATERNAL DRUGS AFFECTING FOETUS [None]
  - PREGNANCY [None]
